FAERS Safety Report 9670674 (Version 2)
Quarter: 2013Q4

REPORT INFORMATION
  Report Type: Spontaneous
  Country: US (occurrence: US)
  Receive Date: 20131106
  Receipt Date: 20131223
  Transmission Date: 20140711
  Serious: No
  Sender: FDA-Public Use
  Company Number: US-B.I. PHARMACEUTICALS,INC./RIDGEFIELD-2013-BI-34380BP

PATIENT
  Age: 55 Year
  Sex: Female
  Weight: 69 kg

DRUGS (2)
  1. COMBIVENT [Suspect]
     Indication: BRONCHITIS CHRONIC
     Dosage: STRENGTH: 18 MCG / 103 MCG; DAILY DOSE: 144 MCG/ 824 MCG
     Route: 055
     Dates: start: 20131018, end: 20131019
  2. METFORMIN [Concomitant]
     Indication: DIABETES MELLITUS
     Route: 048

REACTIONS (2)
  - Dyspnoea [Recovered/Resolved]
  - Product quality issue [Recovered/Resolved]
